FAERS Safety Report 9269524 (Version 1)
Quarter: 2013Q2

REPORT INFORMATION
  Report Type: Spontaneous
  Country: CA (occurrence: CA)
  Receive Date: 20130503
  Receipt Date: 20130503
  Transmission Date: 20140414
  Serious: Yes (Other)
  Sender: FDA-Public Use
  Company Number: CA-PFIZER INC-2013134540

PATIENT
  Age: 56 Year
  Sex: Male
  Weight: 83.91 kg

DRUGS (1)
  1. PANTOLOC [Suspect]
     Dosage: 40 MG, 1X/DAY
     Route: 048

REACTIONS (1)
  - Clostridium test positive [Unknown]
